FAERS Safety Report 6773302-1 (Version None)
Quarter: 2010Q2

REPORT INFORMATION
  Report Type: 
  Country: None (occurrence: None)
  Receive Date: 20100616
  Receipt Date: 20100408
  Transmission Date: 20101027
  Serious: No
  Sender: FDA-Public Use
  Company Number: US-ABBOTT-10P-163-0638648-00

PATIENT
  Sex: Female
  Weight: 79.45 kg

DRUGS (10)
  1. TRILIPIX [Suspect]
     Indication: HYPERLIPIDAEMIA
     Dates: start: 20100303, end: 20100407
  2. LOVASTA [Concomitant]
     Indication: DRUG USE FOR UNKNOWN INDICATION
  3. ALTACE [Concomitant]
     Indication: HYPERTENSION
  4. ASPIRIN [Concomitant]
     Indication: CARDIAC DISORDER
  5. COREG [Concomitant]
     Indication: HYPERTENSION
  6. PLAVIX [Concomitant]
     Indication: CORONARY ARTERIAL STENT INSERTION
  7. NITROUS PUMP SPRAY [Concomitant]
     Indication: CHEST PAIN
  8. OMEPRAZOLE [Concomitant]
     Indication: GASTROOESOPHAGEAL REFLUX DISEASE
  9. BUMEX [Concomitant]
     Indication: DRUG USE FOR UNKNOWN INDICATION
  10. COQ10 [Concomitant]
     Indication: VITAMIN SUPPLEMENTATION

REACTIONS (2)
  - INSOMNIA [None]
  - NIGHTMARE [None]
